FAERS Safety Report 7624370-6 (Version None)
Quarter: 2011Q3

REPORT INFORMATION
  Report Type: 
  Country: None (occurrence: None)
  Receive Date: 20110720
  Receipt Date: 20110708
  Transmission Date: 20111222
  Serious: Yes (Hospitalization, Other)
  Sender: FDA-Public Use
  Company Number: JP-CELGENEUS-087-50794-11071266

PATIENT
  Sex: Female

DRUGS (13)
  1. CEFEPIME DIHYDROCHLORIDE HYDRATE [Concomitant]
     Dosage: 1 GRAM
     Route: 065
     Dates: start: 20110524, end: 20110527
  2. MUCOSTA [Concomitant]
     Dosage: 300 MILLIGRAM
     Route: 048
     Dates: start: 20110513
  3. PLATELETS [Concomitant]
     Indication: PLATELET COUNT
     Route: 065
  4. CYCLOSPORINE [Concomitant]
     Route: 065
  5. AMLODIPINE [Concomitant]
     Dosage: 5 MILLIGRAM
     Route: 048
     Dates: start: 20110513
  6. AMIKACIN SULFATE [Concomitant]
     Dosage: 200 MILLIGRAM
     Route: 065
     Dates: end: 20110606
  7. EBASTINE [Concomitant]
     Dosage: 10 MILLIGRAM
     Route: 048
     Dates: start: 20110513
  8. AZULOXA [Concomitant]
     Dosage: 2 DF
     Route: 048
     Dates: start: 20110613
  9. FAMOTIDINE [Concomitant]
     Dosage: 20 MILLIGRAM
     Route: 048
     Dates: start: 20110613
  10. BIOFERMIN [Concomitant]
     Dosage: 3 GRAM
     Route: 048
     Dates: start: 20110513
  11. SULBACTAM [Concomitant]
     Dosage: 1 GRAM
     Route: 065
  12. VIDAZA [Suspect]
     Dosage: 75 MILLIGRAM/SQ. METER
     Route: 051
     Dates: start: 20110513, end: 20110519
  13. VIDAZA [Suspect]
     Dosage: 75 MILLIGRAM/SQ. METER
     Route: 051
     Dates: start: 20110615, end: 20110621

REACTIONS (2)
  - DUODENAL ULCER [None]
  - HEPATIC ENZYME INCREASED [None]
